FAERS Safety Report 7543517-3 (Version None)
Quarter: 2011Q2

REPORT INFORMATION
  Report Type: 
  Country: None (occurrence: None)
  Receive Date: 20110613
  Receipt Date: 20010831
  Transmission Date: 20111010
  Serious: Yes (Hospitalization, Other)
  Sender: FDA-Public Use
  Company Number: PHBS2001CA04542

PATIENT
  Sex: Male

DRUGS (3)
  1. CLONAZEPAM [Concomitant]
     Dosage: 1 MG, TID
  2. CLOZAPINE [Suspect]
     Indication: SCHIZOPHRENIA
     Dosage: 350 MG/DAY
     Route: 048
     Dates: start: 20001031
  3. PREDNISONE [Concomitant]

REACTIONS (6)
  - LUNG ABSCESS [None]
  - DYSTONIA [None]
  - PYREXIA [None]
  - PNEUMONIA [None]
  - DYSPNOEA [None]
  - HYPERHIDROSIS [None]
